FAERS Safety Report 23571220 (Version 1)
Quarter: 2024Q1

REPORT INFORMATION
  Report Type: Spontaneous
  Country: US (occurrence: None)
  Receive Date: 20240227
  Receipt Date: 20240227
  Transmission Date: 20240409
  Serious: Yes (Hospitalization)
  Sender: FDA-Public Use
  Company Number: None

PATIENT
  Sex: Male

DRUGS (2)
  1. PROCRIT [Suspect]
     Active Substance: ERYTHROPOIETIN
     Dosage: FREQ: INJECT 20,000 UNITS SUBCUTANEOUSLY EVERY TWO WEEKS?
     Dates: start: 20231221
  2. VELTASSA [Concomitant]
     Active Substance: PATIROMER

REACTIONS (3)
  - Blood potassium increased [None]
  - Dyspnoea [None]
  - Therapy interrupted [None]
